FAERS Safety Report 10232334 (Version 1)
Quarter: 2014Q2

REPORT INFORMATION
  Report Type: Spontaneous
  Country: US (occurrence: None)
  Receive Date: 20140610
  Receipt Date: 20140610
  Transmission Date: 20141212
  Serious: No
  Sender: FDA-Public Use
  Company Number: None

PATIENT
  Sex: Female

DRUGS (1)
  1. TECFIDERA [Suspect]
     Indication: MULTIPLE SCLEROSIS
     Dosage: 240MG, BID, ORAL
     Route: 048
     Dates: start: 20140520, end: 20140609

REACTIONS (2)
  - Abdominal pain [None]
  - Drug intolerance [None]
